FAERS Safety Report 13540257 (Version 1)
Quarter: 2017Q2

REPORT INFORMATION
  Report Type: Spontaneous
  Country: JP (occurrence: JP)
  Receive Date: 20170512
  Receipt Date: 20170512
  Transmission Date: 20170830
  Serious: Yes (Hospitalization)
  Sender: FDA-Public Use
  Company Number: JP-PFIZER INC-2017101960

PATIENT
  Age: 73 Year
  Sex: Male
  Weight: 64 kg

DRUGS (4)
  1. LYRICA [Suspect]
     Active Substance: PREGABALIN
     Indication: NEURALGIA
     Dosage: 150 MG, 2X/DAY
     Route: 048
     Dates: start: 201103, end: 201608
  2. ROZEREM [Concomitant]
     Active Substance: RAMELTEON
     Dosage: UNK, WEEKLY
  3. MYSLEE [Interacting]
     Active Substance: ZOLPIDEM TARTRATE
     Indication: INSOMNIA
     Dosage: 5 MG, 1X/DAY
     Dates: start: 20140329, end: 20151217
  4. BELSOMRA [Concomitant]
     Active Substance: SUVOREXANT
     Indication: INSOMNIA
     Dosage: UNK, WEEKLY
     Dates: start: 20151210, end: 20151217

REACTIONS (4)
  - Dizziness [Recovered/Resolved]
  - Drug interaction [Unknown]
  - Subdural haematoma [Recovered/Resolved]
  - Fall [Recovered/Resolved]

NARRATIVE: CASE EVENT DATE: 201612
